FAERS Safety Report 15769423 (Version 1)
Quarter: 2018Q4

REPORT INFORMATION
  Report Type: Spontaneous
  Country: US (occurrence: US)
  Receive Date: 20181228
  Receipt Date: 20181228
  Transmission Date: 20190205
  Serious: Yes (Other)
  Sender: FDA-Public Use
  Company Number: US-ROCHE-2234204

PATIENT
  Age: 53 Year
  Sex: Male
  Weight: 63.56 kg

DRUGS (4)
  1. LYRICA [Concomitant]
     Active Substance: PREGABALIN
     Dosage: STARTED 4 TO 5 YEARS AGO ;ONGOING: YES
     Route: 048
  2. OCREVUS [Suspect]
     Active Substance: OCRELIZUMAB
     Indication: RELAPSING-REMITTING MULTIPLE SCLEROSIS
     Dosage: ONGOING: YES
     Route: 042
     Dates: start: 201801
  3. OCREVUS [Suspect]
     Active Substance: OCRELIZUMAB
     Dosage: 3RD DOSE
     Route: 042
     Dates: start: 20181212
  4. BACLOFEN. [Concomitant]
     Active Substance: BACLOFEN
     Dosage: STARTED 6 YEARS AGO TAKES 3 PILLS AT NIGHT ;ONGOING: YES
     Route: 048

REACTIONS (3)
  - Drug ineffective [Unknown]
  - Progressive multiple sclerosis [Not Recovered/Not Resolved]
  - Muscle atrophy [Not Recovered/Not Resolved]

NARRATIVE: CASE EVENT DATE: 201811
